FAERS Safety Report 7436363-2 (Version None)
Quarter: 2011Q2

REPORT INFORMATION
  Report Type: 
  Country: None (occurrence: None)
  Receive Date: 20110426
  Receipt Date: 20110415
  Transmission Date: 20111010
  Serious: No
  Sender: FDA-Public Use
  Company Number: US-BIOGENIDEC-2011BI001323

PATIENT
  Age: 56 Year
  Sex: Female

DRUGS (2)
  1. TYSABRI [Suspect]
     Route: 042
     Dates: start: 20071107, end: 20071107
  2. TYSABRI [Suspect]
     Indication: MULTIPLE SCLEROSIS
     Route: 042
     Dates: start: 20100323

REACTIONS (14)
  - PIRIFORMIS SYNDROME [None]
  - MUSCLE SPASMS [None]
  - MOTOR DYSFUNCTION [None]
  - BREAST PAIN [None]
  - PAIN IN EXTREMITY [None]
  - INFLUENZA LIKE ILLNESS [None]
  - TRIGEMINAL NEURALGIA [None]
  - ARTHRALGIA [None]
  - MUSCLE CONTRACTURE [None]
  - BALANCE DISORDER [None]
  - EXERCISE TOLERANCE DECREASED [None]
  - GAIT DISTURBANCE [None]
  - MERALGIA PARAESTHETICA [None]
  - COORDINATION ABNORMAL [None]
